FAERS Safety Report 4711519-8 (Version None)
Quarter: 2005Q3

REPORT INFORMATION
  Report Type: 
  Country: None (occurrence: None)
  Receive Date: 20050711
  Receipt Date: 20050711
  Transmission Date: 20060218
  Serious: Yes (Life-Threatening)
  Sender: FDA-Public Use
  Company Number: None

PATIENT
  Age: 23 Year
  Sex: Male
  Weight: 63.5036 kg

DRUGS (1)
  1. LEVAQUIN [Suspect]
     Indication: INFECTION
     Dosage: ONE TABLET   DAILY   ORAL
     Route: 048
     Dates: start: 20050623, end: 20050703

REACTIONS (4)
  - ANXIETY [None]
  - DEPRESSION [None]
  - DIARRHOEA [None]
  - HEART RATE INCREASED [None]
